FAERS Safety Report 20742231 (Version 1)
Quarter: 2022Q2

REPORT INFORMATION
  Report Type: Spontaneous
  Country: US (occurrence: US)
  Receive Date: 20220423
  Receipt Date: 20220423
  Transmission Date: 20220720
  Serious: Yes (Hospitalization)
  Sender: FDA-Public Use
  Company Number: US-AMGEN-USASP2022063350

PATIENT
  Sex: Female

DRUGS (1)
  1. REPATHA [Suspect]
     Active Substance: EVOLOCUMAB
     Indication: Low density lipoprotein increased
     Dosage: UNK
     Route: 065
     Dates: start: 2019, end: 2021

REACTIONS (4)
  - Palpitations [Unknown]
  - Neck surgery [Unknown]
  - Spinal operation [Unknown]
  - Memory impairment [Unknown]
